FAERS Safety Report 22134714 (Version 1)
Quarter: 2023Q1

REPORT INFORMATION
  Report Type: Report from Study
  Country: SA (occurrence: SA)
  Receive Date: 20230324
  Receipt Date: 20230324
  Transmission Date: 20230417
  Serious: Yes (Hospitalization)
  Sender: FDA-Public Use
  Company Number: SA-GLAXOSMITHKLINE-SA2023EME020345

PATIENT

DRUGS (1)
  1. BELIMUMAB [Suspect]
     Active Substance: BELIMUMAB
     Indication: Systemic lupus erythematosus
     Dosage: 200 MG, WE
     Dates: start: 20221209

REACTIONS (11)
  - Pain in extremity [Unknown]
  - Back pain [Unknown]
  - Movement disorder [Unknown]
  - Pyrexia [Unknown]
  - Blood glucose increased [Unknown]
  - Headache [Unknown]
  - Abdominal pain [Unknown]
  - Alopecia [Unknown]
  - Fatigue [Unknown]
  - Arthralgia [Not Recovered/Not Resolved]
  - Feeling hot [Not Recovered/Not Resolved]

NARRATIVE: CASE EVENT DATE: 20230217
